FAERS Safety Report 4622436-6 (Version None)
Quarter: 2005Q1

REPORT INFORMATION
  Report Type: 
  Country: None (occurrence: None)
  Receive Date: 20050325
  Receipt Date: 20050325
  Transmission Date: 20050727
  Serious: No
  Sender: FDA-Public Use
  Company Number: None

PATIENT

DRUGS (1)
  1. MEDROXYPROGESTERONE 150 MG PHARMACIA/UPJOHN [Suspect]
     Indication: CONTRACEPTION
     Dosage: VARIED BY PATIENT BUT USE WAS APPROPRIATE
     Dates: start: 20040801, end: 20041201

REACTIONS (3)
  - ABORTION SPONTANEOUS [None]
  - DRUG EXPOSURE DURING PREGNANCY [None]
  - PREGNANCY WITH INJECTABLE CONTRACEPTIVE [None]
